FAERS Safety Report 7491979-2 (Version None)
Quarter: 2011Q2

REPORT INFORMATION
  Report Type: 
  Country: None (occurrence: None)
  Receive Date: 20110519
  Receipt Date: 20110505
  Transmission Date: 20111010
  Serious: Yes (Death, Other)
  Sender: FDA-Public Use
  Company Number: GB-JNJFOC-20110503563

PATIENT
  Age: 83 Year
  Sex: Male
  Weight: 72 kg

DRUGS (2)
  1. INFLIXIMAB, RECOMBINANT [Suspect]
     Indication: RHEUMATOID ARTHRITIS
     Route: 042
     Dates: start: 20020920, end: 20050515
  2. METHOTREXATE [Concomitant]
     Dates: start: 20020920

REACTIONS (3)
  - DEATH [None]
  - NEOPLASM MALIGNANT [None]
  - SKIN CANCER [None]
